FAERS Safety Report 7298068-0 (Version None)
Quarter: 2011Q1

REPORT INFORMATION
  Report Type: 
  Country: None (occurrence: None)
  Receive Date: 20110217
  Receipt Date: 20110208
  Transmission Date: 20110831
  Serious: Yes (Other)
  Sender: FDA-Public Use
  Company Number: PHHY2009ZA52457

PATIENT
  Age: 54 Year
  Sex: Female

DRUGS (1)
  1. ACLASTA [Suspect]
     Dosage: UNK
     Dates: start: 20091001

REACTIONS (6)
  - PAIN [None]
  - TOOTH FRACTURE [None]
  - OEDEMA MOUTH [None]
  - TOOTHACHE [None]
  - SWELLING FACE [None]
  - EYE DISORDER [None]
